FAERS Safety Report 9070248 (Version 1)
Quarter: 2013Q1

REPORT INFORMATION
  Report Type: Other
  Country: IT (occurrence: IT)
  Receive Date: 20130129
  Receipt Date: 20130129
  Transmission Date: 20140127
  Serious: Yes (Other)
  Sender: FDA-Public Use
  Company Number: IT-WATSON-2013-01078

PATIENT
  Age: 53 None
  Sex: Male

DRUGS (3)
  1. ALPRAZOLAM (UNKNOWN) [Suspect]
     Indication: DEPRESSION
     Dosage: 1 MG, TOTAL
     Route: 048
     Dates: start: 20100101, end: 20121209
  2. CIPRALEX [Suspect]
     Indication: DEPRESSION
     Dosage: 60 MG, TOTAL
     Route: 048
     Dates: start: 20100101, end: 20121209
  3. LAROXYL [Suspect]
     Indication: DEPRESSION
     Dosage: 20 MG, TOTAL
     Route: 048
     Dates: start: 20100101, end: 20121209

REACTIONS (2)
  - Depression [Recovering/Resolving]
  - Anxiety [Recovering/Resolving]
